FAERS Safety Report 19603061 (Version 1)
Quarter: 2021Q3

REPORT INFORMATION
  Report Type: Spontaneous
  Country: US (occurrence: US)
  Receive Date: 20210723
  Receipt Date: 20210723
  Transmission Date: 20211014
  Serious: Yes (Other)
  Sender: FDA-Public Use
  Company Number: US-ENDO PHARMACEUTICALS INC-2021-010372

PATIENT
  Sex: Male

DRUGS (2)
  1. PREDNISONE. [Suspect]
     Active Substance: PREDNISONE
     Indication: PERICARDIAL EFFUSION
     Dosage: UNK UNKNOWN, UNKNOWN
     Route: 065
     Dates: start: 2021
  2. PREDNISONE. [Suspect]
     Active Substance: PREDNISONE
     Indication: MYOCARDITIS
     Dosage: 10 MG, QID
     Route: 048
     Dates: start: 2021

REACTIONS (4)
  - Off label use [Unknown]
  - Condition aggravated [Unknown]
  - Pericardial effusion [Unknown]
  - Myocarditis [Unknown]

NARRATIVE: CASE EVENT DATE: 2021
